FAERS Safety Report 5207722-3 (Version None)
Quarter: 2006Q4

REPORT INFORMATION
  Report Type: 
  Country: None (occurrence: None)
  Receive Date: 20061030
  Receipt Date: 20060901
  Transmission Date: 20070319
  Serious: No
  Sender: FDA-Public Use
  Company Number: 2006CT000717

PATIENT
  Age: 59 Year
  Sex: Male
  Weight: 52.6173 kg

DRUGS (9)
  1. VENTAVIS [Suspect]
     Indication: PULMONARY HYPERTENSION
     Dosage: 5 UG; 6XD; INH
     Route: 055
     Dates: start: 20060831
  2. OXYGEN [Concomitant]
  3. CENTRUM SILVER [Concomitant]
  4. PANTOPRAZOLE SODIUM [Concomitant]
  5. PREDNISONE [Concomitant]
  6. ACTONEL [Concomitant]
  7. IRON [Concomitant]
  8. VITAMIN E [Concomitant]
  9. ASCORBIC ACID [Concomitant]

REACTIONS (1)
  - DYSGEUSIA [None]
